FAERS Safety Report 13937514 (Version 2)
Quarter: 2017Q4

REPORT INFORMATION
  Report Type: Spontaneous
  Country: US (occurrence: US)
  Receive Date: 20170905
  Receipt Date: 20171025
  Transmission Date: 20180320
  Serious: No
  Sender: FDA-Public Use
  Company Number: US-PFIZER INC-2013305044

PATIENT
  Age: 54 Year
  Sex: Female

DRUGS (32)
  1. LYRICA [Suspect]
     Active Substance: PREGABALIN
     Dosage: 100 UNK, 3X/DAY
     Route: 048
     Dates: start: 20170207
  2. LYRICA [Suspect]
     Active Substance: PREGABALIN
     Dosage: 100 MG, 2X/DAY
  3. LEVEMIR [Concomitant]
     Active Substance: INSULIN DETEMIR
     Dosage: UNK UNK, 1X/DAY (BEDTIME: 14UNITS)
     Route: 058
  4. ROSUVASTATIN. [Concomitant]
     Active Substance: ROSUVASTATIN
     Dosage: 40 MG, 1X/DAY(BEDTIME: 1)
  5. PANTOPRAZOLE [Concomitant]
     Active Substance: PANTOPRAZOLE
     Dosage: 40 MG, 1X/DAY (MORNING: 1)
  6. ALPRAZOLAM. [Concomitant]
     Active Substance: ALPRAZOLAM
     Dosage: 1 MG, AS NEEDED (4 OR 6 HRS AS NEEDED: 3)
  7. LYRICA [Suspect]
     Active Substance: PREGABALIN
     Dosage: 75 MG, UNK (MORNING: 1, EVENING: 12UNITS, BEDTIME: 1)
     Route: 048
  8. LYRICA [Suspect]
     Active Substance: PREGABALIN
     Dosage: 100 UNK, 3X/DAY
     Route: 048
     Dates: start: 20150923, end: 20160922
  9. ZOLOFT [Concomitant]
     Active Substance: SERTRALINE HYDROCHLORIDE
     Dosage: 100 MG, 1X/DAY (EVENING: 1)
  10. SPIRIVA [Concomitant]
     Active Substance: TIOTROPIUM BROMIDE MONOHYDRATE
     Dosage: UNK, 1X/DAY (MORNING: 1)
  11. DEXILANT [Concomitant]
     Active Substance: DEXLANSOPRAZOLE
     Dosage: UNK
  12. ULTRAM [Concomitant]
     Active Substance: TRAMADOL HYDROCHLORIDE
     Dosage: UNK UNK, AS NEEDED (4 OR 6 HRS AS NEEDED: 1)
  13. HYDROCORTISONE. [Concomitant]
     Active Substance: HYDROCORTISONE
     Dosage: 30 MG, AS NEEDED (4 OR 6 HRS AS NEEDED: 1)
  14. PHENERGAN [Concomitant]
     Active Substance: PROMETHAZINE HYDROCHLORIDE
     Dosage: UNK
  15. ADVAIR HFA [Concomitant]
     Active Substance: FLUTICASONE PROPIONATE\SALMETEROL XINAFOATE
     Dosage: UNK UNK, 1X/DAY (FLUTICASONE 250-SALMETEROL 50), (MORNING: 1)
  16. INSULIN GLARGINE [Concomitant]
     Active Substance: INSULIN GLARGINE
     Dosage: UNK (EVENING:12UNITS)
     Route: 058
  17. ASPIRIN. [Concomitant]
     Active Substance: ASPIRIN
     Dosage: 81 MG, 1X/DAY (BEDTIME: 1)
  18. NEURONTIN [Concomitant]
     Active Substance: GABAPENTIN
     Dosage: UNK
  19. PROAIR HFA [Concomitant]
     Active Substance: ALBUTEROL SULFATE
     Dosage: UNK UNK, AS NEEDED (4 OR 6 HRS AS NEEDED: 2)
  20. LANTUS [Concomitant]
     Active Substance: INSULIN GLARGINE
  21. LYRICA [Suspect]
     Active Substance: PREGABALIN
     Dosage: 100 UNK, 3X/DAY
     Route: 048
     Dates: start: 20170818
  22. LIPITOR [Concomitant]
     Active Substance: ATORVASTATIN CALCIUM
     Dosage: UNK
  23. PROMETHAZINE [Concomitant]
     Active Substance: PROMETHAZINE\PROMETHAZINE HYDROCHLORIDE
     Dosage: UNK UNK, AS NEEDED (4 HRS AS NEEDED:1)
     Route: 048
  24. ASPIRIN. [Concomitant]
     Active Substance: ASPIRIN
     Dosage: UNK
  25. ALBUTEROL. [Concomitant]
     Active Substance: ALBUTEROL
     Dosage: UNK
  26. METFORMIN [Concomitant]
     Active Substance: METFORMIN HYDROCHLORIDE
     Dosage: 500 MG, 2X/DAY
     Route: 048
  27. METFORMIN [Concomitant]
     Active Substance: METFORMIN HYDROCHLORIDE
     Dosage: 500 MG, 4X/DAY
  28. NAPROXEN SODIUM. [Concomitant]
     Active Substance: NAPROXEN SODIUM
     Dosage: 220 MG, AS NEEDED (4 OR 6 HRS AS NEEDED: 1)
  29. LYRICA [Suspect]
     Active Substance: PREGABALIN
     Dosage: 100 UNK, 3X/DAY
     Route: 048
     Dates: start: 20161011
  30. VALIUM [Concomitant]
     Active Substance: DIAZEPAM
     Dosage: UNK
  31. BUPROPION. [Concomitant]
     Active Substance: BUPROPION
     Dosage: 150 MG, 2X/DAY (MORNING: 1; BEDTIME: 1)
  32. PROCTOFOAM HC [Concomitant]
     Active Substance: HYDROCORTISONE ACETATE\PRAMOXINE HYDROCHLORIDE
     Dosage: UNK UNK, AS NEEDED (HYDROCORTISONE ACETATE 1%, PRAMOCAINE HYDROCHLORIDE 1%FOAM)(4 OR 6 HRS AS NEED)

REACTIONS (5)
  - Withdrawal syndrome [Unknown]
  - Heart rate increased [Unknown]
  - Hypoaesthesia [Unknown]
  - Nausea [Unknown]
  - Hyperhidrosis [Unknown]
